FAERS Safety Report 22601306 (Version 1)
Quarter: 2023Q2

REPORT INFORMATION
  Report Type: Spontaneous
  Country: US (occurrence: US)
  Receive Date: 20230614
  Receipt Date: 20230614
  Transmission Date: 20230722
  Serious: No
  Sender: FDA-Public Use
  Company Number: US-RIGEL PHARMACEUTICALS, INC.- 2023FOS000203

PATIENT
  Sex: Female
  Weight: 60.889 kg

DRUGS (1)
  1. TAVALISSE [Suspect]
     Active Substance: FOSTAMATINIB
     Indication: Immune thrombocytopenia
     Dosage: 150 MG, QD, AFTER BREAKFAST
     Route: 048
     Dates: start: 20220330

REACTIONS (4)
  - COVID-19 [Unknown]
  - Gastrointestinal disorder [Unknown]
  - Emotional disorder [Unknown]
  - Diarrhoea [Unknown]
